FAERS Safety Report 23325418 (Version 1)
Quarter: 2023Q4

REPORT INFORMATION
  Report Type: Spontaneous
  Country: ES (occurrence: ES)
  Receive Date: 20231221
  Receipt Date: 20231221
  Transmission Date: 20240110
  Serious: Yes (Other)
  Sender: FDA-Public Use
  Company Number: None

PATIENT
  Age: 65 Year
  Sex: Female

DRUGS (1)
  1. FOSAPREPITANT DIMEGLUMINE [Suspect]
     Active Substance: FOSAPREPITANT DIMEGLUMINE
     Indication: Vomiting
     Dates: start: 20231114

REACTIONS (2)
  - Respiratory distress [Recovering/Resolving]
  - Oxygen consumption decreased [Recovering/Resolving]

NARRATIVE: CASE EVENT DATE: 20231114
